FAERS Safety Report 23403522 (Version 1)
Quarter: 2024Q1

REPORT INFORMATION
  Report Type: Spontaneous
  Country: US (occurrence: US)
  Receive Date: 20240116
  Receipt Date: 20240116
  Transmission Date: 20240410
  Serious: No
  Sender: FDA-Public Use
  Company Number: US-SA-SAC20240110000919

PATIENT
  Sex: Female

DRUGS (2)
  1. KEVZARA [Suspect]
     Active Substance: SARILUMAB
     Indication: Rheumatoid arthritis
     Dosage: 200 MG, QOW
     Route: 058
     Dates: start: 202310, end: 202311
  2. PEPCID [Concomitant]
     Active Substance: FAMOTIDINE
     Indication: Histamine level
     Dosage: UNK, BID

REACTIONS (3)
  - Pruritus [Unknown]
  - Rash [Unknown]
  - Swelling [Unknown]
